FAERS Safety Report 6764782-6 (Version None)
Quarter: 2010Q2

REPORT INFORMATION
  Report Type: 
  Country: None (occurrence: None)
  Receive Date: 20100610
  Receipt Date: 20100607
  Transmission Date: 20101027
  Serious: Yes (Other)
  Sender: FDA-Public Use
  Company Number: US-PFIZER INC-2010071615

PATIENT
  Sex: Female

DRUGS (2)
  1. CELEBREX [Suspect]
     Dosage: 200 MG, 1X/DAY
     Route: 048
  2. LIPITOR [Suspect]
     Dosage: 10 MG, 1X/DAY
     Route: 048

REACTIONS (1)
  - MYOCARDIAL INFARCTION [None]
